FAERS Safety Report 8564513-3 (Version None)
Quarter: 2012Q3

REPORT INFORMATION
  Report Type: 
  Country: None (occurrence: None)
  Receive Date: 20120803
  Receipt Date: 20120727
  Transmission Date: 20120928
  Serious: Yes (Other)
  Sender: FDA-Public Use
  Company Number: CA-BRISTOL-MYERS SQUIBB COMPANY-16742637

PATIENT
  Age: 58 Year
  Sex: Male

DRUGS (9)
  1. EMEND [Concomitant]
     Dates: start: 20111024
  2. DEXAMETHASONE [Concomitant]
     Dates: start: 20111024
  3. VINORELBINE [Suspect]
     Indication: NON-SMALL CELL LUNG CANCER
     Dosage: NO OF COURSES 8
     Route: 042
     Dates: start: 20111024
  4. CISPLATIN [Suspect]
     Indication: NON-SMALL CELL LUNG CANCER
     Dosage: NO OF COURSES 4
     Route: 042
     Dates: start: 20111024
  5. RANITIDINE [Concomitant]
     Dates: start: 20111108
  6. ONDANSETRON [Concomitant]
     Dates: start: 20111024
  7. PROCHLORPERAZINE [Concomitant]
     Dates: start: 20111101
  8. CETUXIMAB [Suspect]
     Indication: NON-SMALL CELL LUNG CANCER
     Dosage: NO OF COURSES 12
     Route: 042
     Dates: start: 20111024
  9. MULTI-VITAMIN [Concomitant]
     Dates: start: 20111010

REACTIONS (2)
  - DEEP VEIN THROMBOSIS [None]
  - PULMONARY EMBOLISM [None]
